FAERS Safety Report 10149712 (Version 2)
Quarter: 2014Q2

REPORT INFORMATION
  Report Type: Spontaneous
  Country: FR (occurrence: FR)
  Receive Date: 20140502
  Receipt Date: 20140521
  Transmission Date: 20141212
  Serious: Yes (Death, Life-Threatening, Hospitalization)
  Sender: FDA-Public Use
  Company Number: FR-ELI_LILLY_AND_COMPANY-FR201404009010

PATIENT
  Age: 55 Year
  Sex: Male

DRUGS (3)
  1. ALIMTA [Suspect]
     Indication: LUNG NEOPLASM MALIGNANT
     Dosage: 700 MG, UNKNOWN
     Route: 042
     Dates: start: 20140409, end: 20140409
  2. B12                                /00056202/ [Concomitant]
     Indication: PREMEDICATION
     Route: 065
  3. FOLIC ACID [Concomitant]
     Indication: PREMEDICATION
     Route: 065

REACTIONS (8)
  - Pancytopenia [Fatal]
  - Bacterial sepsis [Fatal]
  - Septic shock [Recovered/Resolved]
  - Acute respiratory failure [Unknown]
  - Panniculitis [Unknown]
  - Abdominal pain [Unknown]
  - Vomiting [Unknown]
  - Diarrhoea [Unknown]
